FAERS Safety Report 8188538-5 (Version None)
Quarter: 2012Q1

REPORT INFORMATION
  Report Type: 
  Country: None (occurrence: None)
  Receive Date: 20120306
  Receipt Date: 20120302
  Transmission Date: 20120608
  Serious: Yes (Other)
  Sender: FDA-Public Use
  Company Number: PHEH2012US001881

PATIENT
  Sex: Female

DRUGS (5)
  1. DIOVAN [Suspect]
     Dosage: 160 MG, QD
  2. EYE MEDICATION [Suspect]
     Dosage: UNK
  3. CITRACAL [Concomitant]
  4. ZIAC [Concomitant]
  5. SYNTHROID [Concomitant]

REACTIONS (3)
  - ALOPECIA [None]
  - BLINDNESS [None]
  - GLAUCOMA [None]
